FAERS Safety Report 9650781 (Version 2)
Quarter: 2013Q4

REPORT INFORMATION
  Report Type: Other
  Country: US (occurrence: US)
  Receive Date: 20131029
  Receipt Date: 20131127
  Transmission Date: 20140711
  Serious: Yes (Death)
  Sender: FDA-Public Use
  Company Number: US-SHIRE-ALL1-2013-07436

PATIENT
  Age: 61 Year
  Sex: Female

DRUGS (2)
  1. FOSRENOL [Suspect]
     Indication: PRODUCT USED FOR UNKNOWN INDICATION
     Dosage: 1000 MG, UNKNOWN
     Route: 048
  2. FOSRENOL [Suspect]
     Dosage: 500 MG, UNKNOWN
     Route: 048

REACTIONS (1)
  - Death [Fatal]
